FAERS Safety Report 8437200-X (Version None)
Quarter: 2012Q2

REPORT INFORMATION
  Report Type: 
  Country: None (occurrence: None)
  Receive Date: 20120614
  Receipt Date: 20120320
  Transmission Date: 20120825
  Serious: No
  Sender: FDA-Public Use
  Company Number: US-AMGEN-USASP2011069576

PATIENT
  Age: 47 Year
  Sex: Female

DRUGS (2)
  1. PROLIA [Suspect]
     Indication: OSTEOPOROSIS POSTMENOPAUSAL
     Dosage: 60 MG, Q6MO
     Dates: start: 20110601
  2. OMEPRAZOLE [Concomitant]
     Indication: REFLUX GASTRITIS
     Dosage: 40 MG, BID

REACTIONS (2)
  - SENSATION OF FOREIGN BODY [None]
  - GASTROOESOPHAGEAL REFLUX DISEASE [None]
